FAERS Safety Report 18459038 (Version 1)
Quarter: 2020Q4

REPORT INFORMATION
  Report Type: Spontaneous
  Country: JP (occurrence: JP)
  Receive Date: 20201103
  Receipt Date: 20201103
  Transmission Date: 20210114
  Serious: Yes (Hospitalization, Other)
  Sender: FDA-Public Use
  Company Number: JP-DSJP-DSJ-2020-131602

PATIENT
  Age: 82 Year
  Sex: Female

DRUGS (5)
  1. EFIENT [Interacting]
     Active Substance: PRASUGREL HYDROCHLORIDE
     Dosage: UNK
     Route: 065
  2. LOXONIN [Interacting]
     Active Substance: LOXOPROFEN SODIUM
     Indication: PAIN
     Dosage: UNK
     Route: 048
  3. XARELTO [Suspect]
     Active Substance: RIVAROXABAN
     Dosage: UNK
     Route: 065
  4. EFIENT [Suspect]
     Active Substance: PRASUGREL HYDROCHLORIDE
     Indication: PRODUCT USED FOR UNKNOWN INDICATION
     Dosage: UNK
     Route: 065
  5. CILOSTAZOL. [Suspect]
     Active Substance: CILOSTAZOL
     Dosage: UNK
     Route: 065

REACTIONS (3)
  - Femur fracture [Unknown]
  - Small intestinal haemorrhage [Unknown]
  - Drug interaction [Unknown]
